FAERS Safety Report 14329617 (Version 2)
Quarter: 2018Q1

REPORT INFORMATION
  Report Type: Report from Study
  Country: VN (occurrence: VN)
  Receive Date: 20171227
  Receipt Date: 20180103
  Transmission Date: 20180509
  Serious: Yes (Hospitalization)
  Sender: FDA-Public Use
  Company Number: VN-ASTELLAS-2017US050258

PATIENT
  Age: 50 Year
  Sex: Female

DRUGS (56)
  1. BLINDED ASP1517 [Suspect]
     Active Substance: ROXADUSTAT
     Dosage: UNK UNK, THRICE WEEKLY
     Route: 048
     Dates: start: 20160412, end: 20160509
  2. PROGRAF [Suspect]
     Active Substance: TACROLIMUS\TACROLIMUS ANHYDROUS
     Route: 048
     Dates: start: 20170822, end: 20170822
  3. PROGRAF [Suspect]
     Active Substance: TACROLIMUS\TACROLIMUS ANHYDROUS
     Route: 048
     Dates: start: 20170904, end: 20170911
  4. PROGRAF [Suspect]
     Active Substance: TACROLIMUS\TACROLIMUS ANHYDROUS
     Route: 048
     Dates: start: 20170919, end: 20170927
  5. PROGRAF [Suspect]
     Active Substance: TACROLIMUS\TACROLIMUS ANHYDROUS
     Route: 048
     Dates: start: 20171106, end: 20171106
  6. PROGRAF [Suspect]
     Active Substance: TACROLIMUS\TACROLIMUS ANHYDROUS
     Route: 048
     Dates: start: 20171109, end: 20171109
  7. PROGRAF [Suspect]
     Active Substance: TACROLIMUS\TACROLIMUS ANHYDROUS
     Route: 048
     Dates: start: 20171109, end: 20171109
  8. PROGRAF [Suspect]
     Active Substance: TACROLIMUS\TACROLIMUS ANHYDROUS
     Route: 048
     Dates: start: 20171110, end: 20171110
  9. PROGRAF [Suspect]
     Active Substance: TACROLIMUS\TACROLIMUS ANHYDROUS
     Route: 048
     Dates: start: 20171111
  10. ACYCLOVIR                          /00587301/ [Concomitant]
     Active Substance: ACYCLOVIR
     Indication: ANTIVIRAL PROPHYLAXIS
     Route: 048
     Dates: start: 20170905
  11. BLINDED ASP1517 [Suspect]
     Active Substance: ROXADUSTAT
     Dosage: UNK UNK, THRICE WEEKLY
     Route: 048
     Dates: start: 20160202, end: 20160215
  12. PROGRAF [Suspect]
     Active Substance: TACROLIMUS\TACROLIMUS ANHYDROUS
     Route: 048
     Dates: start: 20170825, end: 20170826
  13. PROGRAF [Suspect]
     Active Substance: TACROLIMUS\TACROLIMUS ANHYDROUS
     Route: 048
     Dates: start: 20170828, end: 20170830
  14. PROGRAF [Suspect]
     Active Substance: TACROLIMUS\TACROLIMUS ANHYDROUS
     Route: 048
     Dates: start: 20170901, end: 20170903
  15. PROGRAF [Suspect]
     Active Substance: TACROLIMUS\TACROLIMUS ANHYDROUS
     Route: 048
     Dates: start: 20170912, end: 20170914
  16. PROGRAF [Suspect]
     Active Substance: TACROLIMUS\TACROLIMUS ANHYDROUS
     Route: 048
     Dates: start: 20170928
  17. PROGRAF [Suspect]
     Active Substance: TACROLIMUS\TACROLIMUS ANHYDROUS
     Route: 048
     Dates: start: 20171110, end: 20171110
  18. BLINDED ASP1517 [Suspect]
     Active Substance: ROXADUSTAT
     Dosage: UNK UNK, THRICE WEEKLY
     Route: 048
     Dates: start: 20160216, end: 20160229
  19. BLINDED ASP1517 [Suspect]
     Active Substance: ROXADUSTAT
     Dosage: UNK UNK, THRICE WEEKLY
     Route: 048
     Dates: start: 20160705, end: 20160801
  20. BLINDED ASP1517 [Suspect]
     Active Substance: ROXADUSTAT
     Dosage: UNK UNK, THRICE WEEKLY
     Route: 048
     Dates: start: 20160928, end: 20161024
  21. PROGRAF [Suspect]
     Active Substance: TACROLIMUS\TACROLIMUS ANHYDROUS
     Route: 048
     Dates: start: 20170827, end: 20170827
  22. PROGRAF [Suspect]
     Active Substance: TACROLIMUS\TACROLIMUS ANHYDROUS
     Route: 048
     Dates: start: 20170827, end: 20170827
  23. PREDNISOLON                        /00016201/ [Concomitant]
     Active Substance: PREDNISOLONE
     Indication: IMMUNOSUPPRESSION
     Route: 048
     Dates: start: 20170922, end: 20171012
  24. CELLCEPT [Concomitant]
     Active Substance: MYCOPHENOLATE MOFETIL\MYCOPHENOLATE MOFETIL HYDROCHLORIDE
     Route: 048
     Dates: start: 20171026
  25. BLINDED ASP1517 [Suspect]
     Active Substance: ROXADUSTAT
     Indication: NEPHROGENIC ANAEMIA
     Dosage: UNK, THRICE WEEKLY
     Route: 048
     Dates: start: 20151124, end: 20151207
  26. BLINDED ASP1517 [Suspect]
     Active Substance: ROXADUSTAT
     Dosage: UNK UNK, THRICE WEEKLY
     Route: 048
     Dates: start: 20160329, end: 20160411
  27. BLINDED ASP1517 [Suspect]
     Active Substance: ROXADUSTAT
     Dosage: UNK UNK, THRICE WEEKLY
     Route: 048
     Dates: start: 20160510, end: 20160606
  28. PROGRAF [Suspect]
     Active Substance: TACROLIMUS\TACROLIMUS ANHYDROUS
     Route: 048
     Dates: start: 20170831, end: 20170831
  29. PROGRAF [Suspect]
     Active Substance: TACROLIMUS\TACROLIMUS ANHYDROUS
     Route: 048
     Dates: start: 20171102, end: 20171105
  30. PROGRAF [Suspect]
     Active Substance: TACROLIMUS\TACROLIMUS ANHYDROUS
     Route: 048
     Dates: start: 20171106, end: 20171106
  31. PROGRAF [Suspect]
     Active Substance: TACROLIMUS\TACROLIMUS ANHYDROUS
     Route: 048
     Dates: start: 20171120, end: 20171127
  32. PREDNISOLON                        /00016201/ [Concomitant]
     Active Substance: PREDNISOLONE
     Route: 048
     Dates: start: 20171013
  33. CELLCEPT [Concomitant]
     Active Substance: MYCOPHENOLATE MOFETIL\MYCOPHENOLATE MOFETIL HYDROCHLORIDE
     Indication: IMMUNOSUPPRESSION
     Route: 048
     Dates: start: 20170919
  34. BLINDED ASP1517 [Suspect]
     Active Substance: ROXADUSTAT
     Dosage: UNK UNK, THRICE WEEKLY
     Route: 048
     Dates: start: 20151222, end: 20160104
  35. BLINDED ASP1517 [Suspect]
     Active Substance: ROXADUSTAT
     Dosage: UNK UNK, THRICE WEEKLY
     Route: 048
     Dates: start: 20160607, end: 20160704
  36. BLINDED ASP1517 [Suspect]
     Active Substance: ROXADUSTAT
     Dosage: UNK UNK, THRICE WEEKLY
     Route: 048
     Dates: start: 20160802, end: 20160829
  37. BLINDED ASP1517 [Suspect]
     Active Substance: ROXADUSTAT
     Dosage: UNK UNK, THRICE WEEKLY
     Route: 048
     Dates: start: 20160830, end: 20160927
  38. PROGRAF [Suspect]
     Active Substance: TACROLIMUS\TACROLIMUS ANHYDROUS
     Route: 048
     Dates: start: 20170824, end: 20170824
  39. PROGRAF [Suspect]
     Active Substance: TACROLIMUS\TACROLIMUS ANHYDROUS
     Route: 048
     Dates: start: 20170915, end: 20170918
  40. SULFAMETHOXAZOLE W/TRIMETHOPRIM [Concomitant]
     Active Substance: SULFAMETHOXAZOLE\TRIMETHOPRIM
     Indication: ANTIBIOTIC PROPHYLAXIS
     Route: 048
     Dates: start: 20170823
  41. BLINDED ASP1517 [Suspect]
     Active Substance: ROXADUSTAT
     Dosage: UNK, THRICE WEEKLY
     Route: 048
     Dates: start: 20151108, end: 20151221
  42. BLINDED ASP1517 [Suspect]
     Active Substance: ROXADUSTAT
     Dosage: UNK UNK, THRICE WEEKLY
     Route: 048
     Dates: start: 20160105, end: 20160118
  43. PROGRAF [Suspect]
     Active Substance: TACROLIMUS\TACROLIMUS ANHYDROUS
     Route: 048
     Dates: start: 20170831, end: 20170831
  44. ANTIBIO [Concomitant]
     Indication: GASTRIC DISORDER
     Dosage: 1.000 OTHER PACKAGE, TWICE DAILY
     Route: 048
     Dates: start: 20170524
  45. BLINDED ASP1517 [Suspect]
     Active Substance: ROXADUSTAT
     Dosage: UNK UNK, THRICE WEEKLY
     Route: 048
     Dates: start: 20160119, end: 20160131
  46. BLINDED ASP1517 [Suspect]
     Active Substance: ROXADUSTAT
     Dosage: UNK UNK, THRICE WEEKLY
     Route: 048
     Dates: start: 20161122, end: 20170116
  47. BLINDED ASP1517 [Suspect]
     Active Substance: ROXADUSTAT
     Dosage: UNK UNK, THRICE WEEKLY
     Route: 048
     Dates: start: 20170117, end: 20170313
  48. BLINDED ASP1517 [Suspect]
     Active Substance: ROXADUSTAT
     Dosage: UNK UNK, THRICE WEEKLY
     Route: 048
     Dates: start: 20170314, end: 20170330
  49. PROGRAF [Suspect]
     Active Substance: TACROLIMUS\TACROLIMUS ANHYDROUS
     Route: 048
     Dates: start: 20170823, end: 20170823
  50. PROGRAF [Suspect]
     Active Substance: TACROLIMUS\TACROLIMUS ANHYDROUS
     Route: 048
     Dates: start: 20170904, end: 20170911
  51. PROGRAF [Suspect]
     Active Substance: TACROLIMUS\TACROLIMUS ANHYDROUS
     Route: 048
     Dates: start: 20170915, end: 20170918
  52. NEXIUM [Concomitant]
     Active Substance: ESOMEPRAZOLE MAGNESIUM
     Indication: PROPHYLAXIS AGAINST GASTROINTESTINAL ULCER
     Route: 048
     Dates: start: 20170825
  53. BLINDED ASP1517 [Suspect]
     Active Substance: ROXADUSTAT
     Dosage: UNK UNK, THRICE WEEKLY
     Route: 048
     Dates: start: 20160301, end: 20160314
  54. BLINDED ASP1517 [Suspect]
     Active Substance: ROXADUSTAT
     Dosage: UNK UNK, THRICE WEEKLY
     Route: 048
     Dates: start: 20160315, end: 20160326
  55. PROGRAF [Suspect]
     Active Substance: TACROLIMUS\TACROLIMUS ANHYDROUS
     Indication: IMMUNOSUPPRESSION
     Route: 048
     Dates: start: 20170821, end: 20170821
  56. PROGRAF [Suspect]
     Active Substance: TACROLIMUS\TACROLIMUS ANHYDROUS
     Route: 048
     Dates: start: 20171107, end: 20171108

REACTIONS (1)
  - Toxicity to various agents [Recovered/Resolved]

NARRATIVE: CASE EVENT DATE: 20171120
